FAERS Safety Report 7404965-5 (Version None)
Quarter: 2011Q2

REPORT INFORMATION
  Report Type: 
  Country: None (occurrence: None)
  Receive Date: 20110411
  Receipt Date: 20110329
  Transmission Date: 20111010
  Serious: Yes (Hospitalization)
  Sender: FDA-Public Use
  Company Number: ES-ELI_LILLY_AND_COMPANY-ES201103007975

PATIENT
  Sex: Female
  Weight: 65 kg

DRUGS (4)
  1. FORTEO [Suspect]
     Indication: OSTEOPOROSIS
     Dosage: 20 UG, QD
     Route: 058
     Dates: start: 20110307, end: 20110317
  2. LORAZEPAM [Concomitant]
     Dosage: 3 DF, QD
     Route: 048
     Dates: end: 20110317
  3. MORPHINE [Concomitant]
     Dosage: 75 MG, OTHER
     Route: 062
     Dates: end: 20110317
  4. NOCTAMID [Concomitant]
     Dosage: 2 MG, QD
     Route: 048
     Dates: end: 20110317

REACTIONS (1)
  - INTESTINAL OBSTRUCTION [None]
